FAERS Safety Report 11741706 (Version 1)
Quarter: 2015Q4

REPORT INFORMATION
  Report Type: Spontaneous
  Country: US (occurrence: None)
  Receive Date: 20151113
  Receipt Date: 20151113
  Transmission Date: 20160304
  Serious: Yes (Disabling)
  Sender: FDA-Public Use
  Company Number: None

PATIENT
  Age: 57 Year
  Sex: Male
  Weight: 106.6 kg

DRUGS (8)
  1. LAMICTAL [Concomitant]
     Active Substance: LAMOTRIGINE
  2. ADULT VITAMIN [Concomitant]
  3. ANTI-DEPRESSANT [Concomitant]
     Active Substance: UNSPECIFIED INGREDIENT
  4. TWO STATIN [Concomitant]
  5. PHENERGAN [Suspect]
     Active Substance: PROMETHAZINE HYDROCHLORIDE
     Indication: WEIGHT DECREASED
     Dosage: 1
     Route: 048
     Dates: start: 20151001, end: 20151029
  6. TWO BLOOD PRESSURE [Concomitant]
  7. FISH OIL [Concomitant]
     Active Substance: FISH OIL
  8. HERBAL/OTHER OTC TO CURB APPETITE [Concomitant]

REACTIONS (1)
  - Ataxia [None]

NARRATIVE: CASE EVENT DATE: 20151107
